FAERS Safety Report 4580415-1 (Version None)
Quarter: 2005Q1

REPORT INFORMATION
  Report Type: 
  Country: None (occurrence: None)
  Receive Date: 20050214
  Receipt Date: 20040114
  Transmission Date: 20050727
  Serious: Yes (Life-Threatening, Hospitalization, Other)
  Sender: FDA-Public Use
  Company Number: US-GLAXOSMITHKLINE-A0494045A

PATIENT
  Age: 46 Year
  Sex: Female
  Weight: 90.9 kg

DRUGS (6)
  1. LAMICTAL [Suspect]
     Indication: BIPOLAR DISORDER
     Dosage: 25MG SEE DOSAGE TEXT
     Route: 048
     Dates: start: 20030918, end: 20031010
  2. LEXAPRO [Concomitant]
     Dosage: 20MG PER DAY
     Route: 048
  3. ATARAX [Concomitant]
     Indication: ANXIETY
     Dosage: 25MG THREE TIMES PER DAY
     Route: 048
  4. TOPAMAX [Concomitant]
     Dosage: 100MG THREE TIMES PER DAY
     Route: 048
  5. SEROQUEL [Concomitant]
     Dosage: 100MG AT NIGHT
     Route: 048
  6. ATIVAN [Concomitant]
     Indication: INSOMNIA
     Dosage: 2MG AT NIGHT

REACTIONS (2)
  - RASH [None]
  - STEVENS-JOHNSON SYNDROME [None]
